FAERS Safety Report 6051346-5 (Version None)
Quarter: 2009Q1

REPORT INFORMATION
  Report Type: 
  Country: None (occurrence: None)
  Receive Date: 20090121
  Receipt Date: 20090105
  Transmission Date: 20090719
  Serious: Yes (Death, Life-Threatening)
  Sender: FDA-Public Use
  Company Number: 2008002799

PATIENT
  Age: 66 Year
  Sex: Female

DRUGS (5)
  1. TARCEVA [Suspect]
     Indication: LUNG ADENOCARCINOMA
     Dosage: (150 MG, QD), ORAL
     Route: 048
     Dates: start: 20071205, end: 20071219
  2. EFFEXOR [Concomitant]
  3. IMOVANE (ZOPICLONE) [Concomitant]
  4. DEXTROPROPXYPHEN/PARACETAMOL [Concomitant]
  5. DOXYCYCLINE (DOXYCLINE) [Concomitant]

REACTIONS (2)
  - HAEMOGLOBIN DECREASED [None]
  - SHOCK [None]
